FAERS Safety Report 4726033-3 (Version None)
Quarter: 2005Q3

REPORT INFORMATION
  Report Type: 
  Country: None (occurrence: None)
  Receive Date: 20050727
  Receipt Date: 20050719
  Transmission Date: 20060218
  Serious: Yes (Death, Life-Threatening, Hospitalization)
  Sender: FDA-Public Use
  Company Number: US-JNJFOC-20050507407

PATIENT
  Sex: Female
  Weight: 56.7 kg

DRUGS (3)
  1. ORTHO TRI-CYCLEN LO [Suspect]
     Route: 048
  2. ZONEGRAN [Suspect]
     Route: 048
  3. ZONEGRAN [Suspect]
     Indication: PARTIAL SEIZURES
     Route: 048

REACTIONS (9)
  - ALANINE AMINOTRANSFERASE INCREASED [None]
  - ANOREXIA [None]
  - ASPARTATE AMINOTRANSFERASE INCREASED [None]
  - CARDIAC ARREST [None]
  - FEELING ABNORMAL [None]
  - HAEMORRHAGE [None]
  - HYPOCOAGULABLE STATE [None]
  - LOSS OF CONSCIOUSNESS [None]
  - PULMONARY EMBOLISM [None]
